FAERS Safety Report 8328156-9 (Version None)
Quarter: 2012Q2

REPORT INFORMATION
  Report Type: 
  Country: None (occurrence: None)
  Receive Date: 20120502
  Receipt Date: 20120430
  Transmission Date: 20120825
  Serious: Yes (Death)
  Sender: FDA-Public Use
  Company Number: PHEH2011US00916

PATIENT
  Sex: Male
  Weight: 82 kg

DRUGS (7)
  1. ALLOPURINOL [Concomitant]
     Indication: GOUT
     Dosage: 300 MG, DAILY
     Route: 048
     Dates: start: 20040513
  2. HYDREA [Concomitant]
     Indication: CHRONIC MYELOID LEUKAEMIA
     Dosage: 500 MG, DAILY
     Route: 048
     Dates: start: 20090402
  3. SPRYCEL [Concomitant]
     Indication: CHRONIC MYELOID LEUKAEMIA
     Dosage: 50 MG, BID
     Route: 048
     Dates: start: 20090305, end: 20090501
  4. GLEEVEC [Suspect]
     Indication: CHRONIC MYELOID LEUKAEMIA
     Dosage: 4 DF (100MGX 4 TABLETS) DAILY
     Route: 048
     Dates: start: 20040521
  5. ZOLOFT [Concomitant]
     Indication: DEPRESSION
     Dosage: 50 MG, DAILY
     Route: 048
     Dates: start: 20060316
  6. VICODIN [Concomitant]
     Indication: PAIN
     Dosage: 5/500 MG DAILY
     Route: 048
     Dates: start: 20050901
  7. FOLIC ACID [Concomitant]
     Dosage: 1 MG DAILY
     Route: 048
     Dates: start: 20080505

REACTIONS (1)
  - DEATH [None]
